FAERS Safety Report 9921891 (Version 2)
Quarter: 2014Q1

REPORT INFORMATION
  Report Type: Spontaneous
  Country: DE (occurrence: DE)
  Receive Date: 20140225
  Receipt Date: 20140318
  Transmission Date: 20141002
  Serious: Yes (Death, Hospitalization, Other)
  Sender: FDA-Public Use
  Company Number: DE-BRISTOL-MYERS SQUIBB COMPANY-20306577

PATIENT
  Age: 71 Year
  Sex: Male
  Weight: 51 kg

DRUGS (1)
  1. ELIQUIS [Suspect]
     Dosage: 3 DAYS

REACTIONS (3)
  - Death [Fatal]
  - Cardiac failure [Unknown]
  - Pneumonia [Unknown]
